FAERS Safety Report 6098157-2 (Version None)
Quarter: 2009Q1

REPORT INFORMATION
  Report Type: 
  Country: None (occurrence: None)
  Receive Date: 20090227
  Receipt Date: 20090220
  Transmission Date: 20090719
  Serious: Yes (Other)
  Sender: FDA-Public Use
  Company Number: ZA-B.I. PHARMACEUTICALS,INC./RIDGEFIELD-2009-BP-02092BP

PATIENT
  Age: 31 Year
  Sex: Female

DRUGS (5)
  1. VIRAMUNE [Suspect]
     Indication: HIV INFECTION
     Dosage: 400MG
     Route: 048
     Dates: start: 20080506
  2. LAMIVUDINE AND ZIDOVUDINE [Suspect]
     Indication: HIV INFECTION
     Route: 048
     Dates: start: 20080506
  3. EFAVIRENZ [Suspect]
     Indication: HIV INFECTION
     Dosage: 600MG
     Route: 048
     Dates: start: 20060104, end: 20080506
  4. LAMIVUDINE [Suspect]
     Indication: HIV INFECTION
     Dosage: 300MG
     Route: 048
     Dates: start: 20060104, end: 20080506
  5. STAVUDINE [Suspect]
     Indication: HIV INFECTION
     Dosage: 60MG
     Route: 048
     Dates: start: 20060104, end: 20080506

REACTIONS (1)
  - ABORTION SPONTANEOUS [None]
